FAERS Safety Report 18257658 (Version 1)
Quarter: 2020Q3

REPORT INFORMATION
  Report Type: Spontaneous
  Country: US (occurrence: US)
  Receive Date: 20200911
  Receipt Date: 20200911
  Transmission Date: 20201103
  Serious: Yes (Other)
  Sender: FDA-Public Use
  Company Number: US-B.I. PHARMACEUTICALS,INC./RIDGEFIELD-2020-BI-045893

PATIENT
  Age: 75 Year
  Sex: Female

DRUGS (3)
  1. AGGRENOX [Suspect]
     Active Substance: ASPIRIN\DIPYRIDAMOLE
     Indication: CEREBROVASCULAR ACCIDENT
     Dosage: NR
     Dates: start: 2010
  2. NORVASC [Concomitant]
     Active Substance: AMLODIPINE BESYLATE
     Indication: HYPERTENSION
  3. AGGRENOX [Suspect]
     Active Substance: ASPIRIN\DIPYRIDAMOLE
     Indication: TRANSIENT ISCHAEMIC ATTACK

REACTIONS (5)
  - Dementia [Not Recovered/Not Resolved]
  - Fall [Recovered/Resolved]
  - Jaundice [Recovered/Resolved]
  - Vision blurred [Recovered/Resolved]
  - Hip fracture [Unknown]

NARRATIVE: CASE EVENT DATE: 2016
